FAERS Safety Report 6970199-1 (Version None)
Quarter: 2010Q3

REPORT INFORMATION
  Report Type: 
  Country: None (occurrence: None)
  Receive Date: 20100823
  Receipt Date: 20100524
  Transmission Date: 20110219
  Serious: No
  Sender: FDA-Public Use
  Company Number: 012597

PATIENT
  Sex: Male
  Weight: 111.1 kg

DRUGS (7)
  1. CIMZIA [Suspect]
     Indication: CROHN'S DISEASE
     Dosage: SUBCUTANEOUS
     Route: 058
     Dates: start: 20091101
  2. LANTUS [Concomitant]
  3. LOVASTATIN [Concomitant]
  4. PLAVIX [Concomitant]
  5. FOLIC ACID [Concomitant]
  6. CARVEDILOL [Concomitant]
  7. TAMSULOSIN [Concomitant]

REACTIONS (1)
  - HAEMORRHAGE [None]
